FAERS Safety Report 6613664-9 (Version None)
Quarter: 2010Q1

REPORT INFORMATION
  Report Type: 
  Country: None (occurrence: None)
  Receive Date: 20100304
  Receipt Date: 20100222
  Transmission Date: 20100710
  Serious: Yes (Other)
  Sender: FDA-Public Use
  Company Number: JP-ELI_LILLY_AND_COMPANY-JP201003000767

PATIENT
  Age: 9 Year
  Sex: Male

DRUGS (2)
  1. HUMATROPE [Suspect]
     Route: 058
  2. HUMATROPE [Suspect]
     Route: 058

REACTIONS (2)
  - CIRCUMSTANCE OR INFORMATION CAPABLE OF LEADING TO MEDICATION ERROR [None]
  - SURGERY [None]
